FAERS Safety Report 21003847 (Version 6)
Quarter: 2023Q2

REPORT INFORMATION
  Report Type: Report from Study
  Country: JP (occurrence: JP)
  Receive Date: 20220624
  Receipt Date: 20230612
  Transmission Date: 20230721
  Serious: Yes (Hospitalization, Other)
  Sender: FDA-Public Use
  Company Number: JP-ONO-2022JP017308

PATIENT
  Age: 73 Year
  Sex: Female
  Weight: 62 kg

DRUGS (13)
  1. BRAFTOVI [Suspect]
     Active Substance: ENCORAFENIB
     Indication: Colon cancer
     Dosage: 300 MG, EVERYDAY
     Route: 048
     Dates: start: 20211202, end: 20220505
  2. BRAFTOVI [Suspect]
     Active Substance: ENCORAFENIB
     Dosage: 300 MG, EVERYDAY
     Route: 048
     Dates: start: 20220609, end: 20220720
  3. BRAFTOVI [Suspect]
     Active Substance: ENCORAFENIB
     Dosage: 200 MG, EVERYDAY
     Route: 048
     Dates: start: 20220721, end: 20220825
  4. BRAFTOVI [Suspect]
     Active Substance: ENCORAFENIB
     Dosage: 200 MG, EVERYDAY
     Route: 048
     Dates: start: 20221013
  5. MEKTOVI [Suspect]
     Active Substance: BINIMETINIB
     Indication: Colon cancer
     Dosage: 90 MG, EVERYDAY
     Route: 048
     Dates: start: 20220421, end: 20220505
  6. MEKTOVI [Suspect]
     Active Substance: BINIMETINIB
     Dosage: 60 MG, EVERYDAY
     Route: 048
     Dates: start: 20220609, end: 20220706
  7. MEKTOVI [Suspect]
     Active Substance: BINIMETINIB
     Dosage: 30 MG, EVERYDAY
     Route: 048
     Dates: start: 20220721, end: 20220825
  8. MEKTOVI [Suspect]
     Active Substance: BINIMETINIB
     Dosage: 30 MG, EVERYDAY
     Route: 048
     Dates: start: 20221013
  9. CETUXIMAB [Suspect]
     Active Substance: CETUXIMAB
     Indication: Colon cancer
     Dosage: 400 MG/M2
     Route: 065
     Dates: start: 20211202, end: 20211202
  10. CETUXIMAB [Suspect]
     Active Substance: CETUXIMAB
     Dosage: 250 MG/M2
     Route: 065
     Dates: start: 20211209, end: 20220330
  11. CETUXIMAB [Suspect]
     Active Substance: CETUXIMAB
     Dosage: 150 MG/M2
     Route: 065
     Dates: start: 20220407, end: 20220505
  12. CETUXIMAB [Suspect]
     Active Substance: CETUXIMAB
     Dosage: 150 MG/M2
     Route: 065
     Dates: start: 20220609, end: 20220825
  13. CETUXIMAB [Suspect]
     Active Substance: CETUXIMAB
     Dosage: 150 MG/M2
     Route: 065
     Dates: start: 20221013

REACTIONS (1)
  - Acute kidney injury [Recovered/Resolved]

NARRATIVE: CASE EVENT DATE: 20220506
